FAERS Safety Report 8553304-5 (Version None)
Quarter: 2012Q3

REPORT INFORMATION
  Report Type: 
  Country: None (occurrence: None)
  Receive Date: 20120731
  Receipt Date: 20120720
  Transmission Date: 20120928
  Serious: Yes (Life-Threatening)
  Sender: FDA-Public Use
  Company Number: GB-VERTEX PHARMACEUTICALS INC.-000000000000001024

PATIENT
  Sex: Male

DRUGS (2)
  1. INTERFERON [Concomitant]
     Indication: HEPATITIS C
     Route: 058
     Dates: start: 20120516
  2. INCIVO [Suspect]
     Indication: HEPATITIS C
     Dosage: DOSAGE FORM: TABLET
     Route: 048
     Dates: start: 20120516

REACTIONS (7)
  - INSOMNIA [None]
  - NAUSEA [None]
  - MOOD ALTERED [None]
  - RASH [None]
  - HEADACHE [None]
  - OROPHARYNGEAL PLAQUE [None]
  - DYSGEUSIA [None]
